FAERS Safety Report 5740368-7 (Version None)
Quarter: 2008Q2

REPORT INFORMATION
  Report Type: 
  Country: None (occurrence: None)
  Receive Date: 20080516
  Receipt Date: 20080508
  Transmission Date: 20081010
  Serious: Yes (Hospitalization, Other)
  Sender: FDA-Public Use
  Company Number: US-ASTRAZENECA-2007UW03854

PATIENT
  Age: 44 Year
  Sex: Female

DRUGS (9)
  1. SEROQUEL [Suspect]
     Indication: DEPRESSION
     Route: 048
     Dates: start: 20011018, end: 20030829
  2. RISPERDAL [Concomitant]
     Dates: start: 20040101, end: 20070701
  3. ABILIFY [Concomitant]
     Dates: start: 20060101
  4. HALDOL [Concomitant]
     Dates: start: 20030101
  5. NAVANE [Concomitant]
     Dates: start: 20030101
  6. ZOLOFT [Concomitant]
  7. EFFEXOR [Concomitant]
  8. COGENTIN [Concomitant]
  9. KLONAPINE [Concomitant]

REACTIONS (9)
  - CARBON MONOXIDE POISONING [None]
  - CEREBROVASCULAR ACCIDENT [None]
  - DIABETES MELLITUS [None]
  - DIABETIC KETOACIDOSIS [None]
  - HYPOGLYCAEMIA [None]
  - KNEE OPERATION [None]
  - MYOCARDIAL INFARCTION [None]
  - PANCREATITIS [None]
  - SURGERY [None]
